FAERS Safety Report 9612230 (Version 2)
Quarter: 2013Q4

REPORT INFORMATION
  Report Type: Spontaneous
  Country: US (occurrence: US)
  Receive Date: 20131010
  Receipt Date: 20131010
  Transmission Date: 20140711
  Serious: Yes (Other)
  Sender: FDA-Public Use
  Company Number: US-ASTELLAS-2013US008713

PATIENT
  Age: 77 Year
  Sex: Female

DRUGS (8)
  1. MYRBETRIQ [Suspect]
     Indication: POLLAKIURIA
     Dosage: 25 MG, UID/QD
     Route: 048
     Dates: start: 20130802, end: 20130805
  2. UNSPECIFIED MEDICATION [Concomitant]
     Indication: PARKINSON^S DISEASE
     Dosage: UNK
     Route: 065
  3. COREG [Concomitant]
     Indication: PRODUCT USED FOR UNKNOWN INDICATION
     Dosage: UNK
     Route: 065
  4. LEVODOPA [Concomitant]
     Indication: PRODUCT USED FOR UNKNOWN INDICATION
     Dosage: UNK  5 TIMES A DAY
     Route: 065
  5. TRIHEXYPHENIDYL [Concomitant]
     Indication: PRODUCT USED FOR UNKNOWN INDICATION
     Dosage: 8 MG, UID/QD
     Route: 048
  6. AMANTADINE [Concomitant]
     Indication: PRODUCT USED FOR UNKNOWN INDICATION
     Dosage: 200 MG, UID/QD
     Route: 065
  7. THYROID THERAPY [Concomitant]
     Indication: PRODUCT USED FOR UNKNOWN INDICATION
     Dosage: 100 MG, UID/QD
     Route: 048
  8. ZOLPIDEM TARTRATE [Concomitant]
     Indication: PRODUCT USED FOR UNKNOWN INDICATION
     Dosage: 0.5 DF, PRN
     Route: 065

REACTIONS (3)
  - Headache [Recovered/Resolved]
  - Abdominal discomfort [Recovered/Resolved]
  - Diarrhoea [Recovered/Resolved]
